FAERS Safety Report 21568202 (Version 1)
Quarter: 2022Q4

REPORT INFORMATION
  Report Type: Spontaneous
  Country: US (occurrence: None)
  Receive Date: 20221107
  Receipt Date: 20221107
  Transmission Date: 20230113
  Serious: Yes (Hospitalization)
  Sender: FDA-Public Use
  Company Number: None

PATIENT
  Age: 66 Year
  Sex: Male

DRUGS (3)
  1. CARBOPLATIN [Suspect]
     Active Substance: CARBOPLATIN
     Indication: Neoplasm malignant
     Dates: start: 20220823
  2. PACLITAXEL [Suspect]
     Active Substance: PACLITAXEL
  3. PEMBROLIZUMAB [Suspect]
     Active Substance: PEMBROLIZUMAB

REACTIONS (5)
  - Nausea [None]
  - Delayed effects of radiation [None]
  - Gastrooesophageal reflux disease [None]
  - Condition aggravated [None]
  - Vomiting [None]

NARRATIVE: CASE EVENT DATE: 20220827
